FAERS Safety Report 7529920-6 (Version None)
Quarter: 2011Q2

REPORT INFORMATION
  Report Type: 
  Country: None (occurrence: None)
  Receive Date: 20110607
  Receipt Date: 20110601
  Transmission Date: 20111010
  Serious: Yes (Other)
  Sender: FDA-Public Use
  Company Number: BR-PFIZER INC-2011097883

PATIENT
  Sex: Male

DRUGS (1)
  1. TOLTERODINE TARTRATE [Suspect]
     Indication: NOCTURIA
     Dosage: 4 MG, 1X/DAY
     Route: 048
     Dates: start: 20110404

REACTIONS (2)
  - HYPERTONIC BLADDER [None]
  - BENIGN PROSTATIC HYPERPLASIA [None]
